FAERS Safety Report 12909873 (Version 1)
Quarter: 2016Q4

REPORT INFORMATION
  Report Type: Spontaneous
  Country: US (occurrence: US)
  Receive Date: 20161104
  Receipt Date: 20161104
  Transmission Date: 20170207
  Serious: Yes (Disabling)
  Sender: FDA-Public Use
  Company Number: US-PROCTER+GAMBLE-GS16133023

PATIENT
  Age: 52 Year
  Sex: Female

DRUGS (1)
  1. P+GUNKNONPGBSSNPGHBSS# [Suspect]
     Active Substance: BISMUTH SUBSALICYLATE
     Indication: GASTROINTESTINAL DISORDER
     Dosage: 4 TABLETS OF 262 MG EACH DAILY OVER THE PAST TWO YEARS
     Route: 048

REACTIONS (15)
  - Urinary incontinence [Unknown]
  - CSF test abnormal [Unknown]
  - Product use issue [Unknown]
  - Neurotoxicity [Recovered/Resolved]
  - Imaging procedure abnormal [Unknown]
  - Dementia [Recovered/Resolved]
  - Ataxia [Recovered/Resolved]
  - Myoclonus [Recovered/Resolved]
  - Toxicity to various agents [Recovered/Resolved]
  - CSF protein increased [Unknown]
  - Positron emission tomogram abnormal [Unknown]
  - Encephalopathy [Unknown]
  - Disturbance in attention [Recovered/Resolved]
  - Electroencephalogram abnormal [Unknown]
  - Cognitive disorder [Recovering/Resolving]
